FAERS Safety Report 17391942 (Version 1)
Quarter: 2020Q1

REPORT INFORMATION
  Report Type: Spontaneous
  Country: IE (occurrence: IE)
  Receive Date: 20200207
  Receipt Date: 20200207
  Transmission Date: 20200409
  Serious: Yes (Other)
  Sender: FDA-Public Use
  Company Number: IE-BAUSCH-BL-2020-003615

PATIENT
  Sex: Female

DRUGS (3)
  1. PREDNISOLONE (GENERIC) (PREDNISOLONE SODIUM PHOSPHATE) [Suspect]
     Active Substance: PREDNISOLONE SODIUM PHOSPHATE
     Indication: LOWER RESPIRATORY TRACT INFECTION
     Dosage: 30MG A DAY FOR 6 DAYS, THEN REDUCING BY 5MG A DAY UNTIL COMPLETE
     Route: 048
     Dates: start: 20191221, end: 20191231
  2. DISTACLOR [Concomitant]
     Indication: LOWER RESPIRATORY TRACT INFECTION
     Dates: start: 20191221
  3. RAMIPRIL (G) [Concomitant]
     Indication: PRODUCT USED FOR UNKNOWN INDICATION

REACTIONS (1)
  - Visual impairment [Not Recovered/Not Resolved]
